FAERS Safety Report 4991069-4 (Version None)
Quarter: 2006Q2

REPORT INFORMATION
  Report Type: 
  Country: None (occurrence: None)
  Receive Date: 20060503
  Receipt Date: 20060118
  Transmission Date: 20061013
  Serious: Yes (Death, Other)
  Sender: FDA-Public Use
  Company Number: US-MERCK-0601USA02219

PATIENT
  Age: 61 Year
  Sex: Female

DRUGS (8)
  1. CELEBREX [Concomitant]
     Indication: ARTHRITIS
     Route: 065
  2. VIOXX [Suspect]
     Indication: ARTHRITIS
     Route: 048
  3. BEXTRA [Suspect]
     Indication: ARTHRITIS
     Route: 065
  4. LASIX [Concomitant]
     Indication: HYPERTENSION
     Route: 065
     Dates: start: 19740101
  5. CATAPRES [Concomitant]
     Indication: HYPERTENSION
     Route: 065
     Dates: start: 19840101
  6. LIPITOR [Concomitant]
     Route: 065
  7. PREMARIN [Concomitant]
     Indication: HYSTERECTOMY
     Route: 065
     Dates: start: 19940101
  8. PROZAC [Concomitant]
     Indication: MIGRAINE
     Route: 065

REACTIONS (4)
  - DEATH [None]
  - INJURY [None]
  - MYOCARDIAL INFARCTION [None]
  - PAIN [None]
